FAERS Safety Report 7904528-9 (Version None)
Quarter: 2011Q4

REPORT INFORMATION
  Report Type: 
  Country: None (occurrence: None)
  Receive Date: 20111109
  Receipt Date: 20111028
  Transmission Date: 20120403
  Serious: Yes (Hospitalization, Other)
  Sender: FDA-Public Use
  Company Number: US-BAYER-2011-035970

PATIENT
  Age: 26 Year
  Sex: Female
  Weight: 107 kg

DRUGS (5)
  1. YASMIN [Suspect]
     Dosage: 1 UNK, UNK
     Route: 048
     Dates: start: 20050301, end: 20090701
  2. BYETTA [Concomitant]
     Route: 048
  3. DROSPIRENONE AND ETHINYL ESTRADIOL [Suspect]
     Dosage: UNK
     Dates: start: 20050301, end: 20090701
  4. GLUCOPHAGE [Concomitant]
     Route: 048
  5. METFORMIN HCL [Concomitant]
     Indication: INSULIN RESISTANCE
     Dosage: UNK
     Dates: start: 20060101, end: 20090101

REACTIONS (4)
  - GALLBLADDER INJURY [None]
  - INJURY [None]
  - CHOLECYSTITIS ACUTE [None]
  - PAIN [None]
